FAERS Safety Report 8779604 (Version 2)
Quarter: 2012Q4

REPORT INFORMATION
  Report Type: 
  Country: US (occurrence: US)
  Receive Date: 20120912
  Receipt Date: 20121213
  Transmission Date: 20130627
  Serious: Yes (Death, Other)
  Sender: FDA-Public Use
  Company Number: US-ROCHE-1099303

PATIENT
  Age: 60 Year
  Sex: Male

DRUGS (3)
  1. ACTIVASE [Suspect]
     Indication: ACUTE MYOCARDIAL INFARCTION
     Dosage: IVP over 4 min
     Route: 065
     Dates: start: 19920417
  2. ACTIVASE [Suspect]
     Dosage: IVPB over 30 min
     Route: 065
     Dates: start: 19920417
  3. ACTIVASE [Suspect]
     Dosage: 50 mg over 1 hour
     Route: 065
     Dates: start: 19920417

REACTIONS (3)
  - Death [Fatal]
  - Supraventricular extrasystoles [Unknown]
  - Chest pain [Unknown]
